FAERS Safety Report 12251910 (Version 1)
Quarter: 2016Q2

REPORT INFORMATION
  Report Type: Spontaneous
  Country: BR (occurrence: BR)
  Receive Date: 20160411
  Receipt Date: 20160411
  Transmission Date: 20160815
  Serious: Yes (Other)
  Sender: FDA-Public Use
  Company Number: BR-PFIZER INC-2016190787

PATIENT
  Age: 53 Year
  Sex: Female

DRUGS (1)
  1. SUTENT [Suspect]
     Active Substance: SUNITINIB MALATE
     Indication: RENAL CANCER METASTATIC
     Dosage: ^STRENGTH: 50MG.^

REACTIONS (6)
  - Haematochezia [Unknown]
  - Venous injury [Unknown]
  - Asthenia [Unknown]
  - Decreased appetite [Unknown]
  - Oesophageal haemorrhage [Unknown]
  - Haematemesis [Unknown]
